FAERS Safety Report 6291922-8 (Version None)
Quarter: 2009Q3

REPORT INFORMATION
  Report Type: 
  Country: None (occurrence: None)
  Receive Date: 20090729
  Receipt Date: 20090721
  Transmission Date: 20100115
  Serious: Yes (Other)
  Sender: FDA-Public Use
  Company Number: 2009-200567-NL

PATIENT
  Age: 28 Year
  Sex: Female
  Weight: 49.4 kg

DRUGS (3)
  1. IMPLANON [Suspect]
     Indication: CONTRACEPTION
     Dosage: SUBDERMAL
     Route: 059
     Dates: start: 20090624, end: 20090710
  2. TRAZONE [Concomitant]
  3. PROZAC [Concomitant]

REACTIONS (3)
  - FEELING ABNORMAL [None]
  - SUICIDAL IDEATION [None]
  - TREATMENT NONCOMPLIANCE [None]
